FAERS Safety Report 5327921-X (Version None)
Quarter: 2007Q2

REPORT INFORMATION
  Report Type: 
  Country: None (occurrence: None)
  Receive Date: 20070517
  Receipt Date: 20070509
  Transmission Date: 20071010
  Serious: Yes (Hospitalization)
  Sender: FDA-Public Use
  Company Number: US-BOEHRINGER INGELHEIM PHARMACEUTICALS, INC.-2007-BP-06401BP

PATIENT
  Age: 44 Year
  Sex: Female

DRUGS (3)
  1. MOBIC [Suspect]
     Indication: OSTEOARTHRITIS
     Dates: start: 20061212, end: 20070320
  2. UNSPECIFIED NON-BI STUDY DRUG [Suspect]
     Indication: OSTEOARTHRITIS
     Dates: start: 20061129, end: 20070320
  3. ACETAMINOPHEN [Concomitant]
     Indication: HEADACHE

REACTIONS (10)
  - CARDIOMEGALY [None]
  - CHEST DISCOMFORT [None]
  - CHEST PAIN [None]
  - CHILLS [None]
  - DIZZINESS [None]
  - HYPOAESTHESIA [None]
  - MUSCULOSKELETAL CHEST PAIN [None]
  - NAUSEA [None]
  - NON-CARDIAC CHEST PAIN [None]
  - SINUS TACHYCARDIA [None]
